FAERS Safety Report 11642305 (Version 3)
Quarter: 2016Q1

REPORT INFORMATION
  Report Type: Report from Study
  Country: US (occurrence: US)
  Receive Date: 20151019
  Receipt Date: 20160107
  Transmission Date: 20160525
  Serious: No
  Sender: FDA-Public Use
  Company Number: PHEH2015US020718

PATIENT
  Age: 60 Year
  Sex: Female
  Weight: 61.2 kg

DRUGS (1)
  1. GILENYA [Suspect]
     Active Substance: FINGOLIMOD HYDROCHLORIDE
     Indication: MULTIPLE SCLEROSIS
     Dosage: 0.5 MG, QD
     Route: 048
     Dates: start: 20150411, end: 20151222

REACTIONS (12)
  - Abdominal pain lower [Unknown]
  - Abdominal distension [Unknown]
  - Depression [Unknown]
  - Fatigue [Unknown]
  - Pain [Unknown]
  - Faeces pale [Unknown]
  - Hepatic enzyme increased [Unknown]
  - Diarrhoea [Recovered/Resolved]
  - Cough [Unknown]
  - Nausea [Unknown]
  - Muscular weakness [Unknown]
  - Depressed mood [Unknown]

NARRATIVE: CASE EVENT DATE: 20150411
